FAERS Safety Report 9659373 (Version 2)
Quarter: 2015Q3

REPORT INFORMATION
  Report Type: Spontaneous
  Country: AU (occurrence: AU)
  Receive Date: 20131031
  Receipt Date: 20150729
  Transmission Date: 20151125
  Serious: Yes (Other)
  Sender: FDA-Public Use
  Company Number: AU-RANBAXY-2013R1-74682

PATIENT
  Age: 8 Year
  Sex: Male

DRUGS (1)
  1. HYDROCHLOROTHIAZIDE. [Suspect]
     Active Substance: HYDROCHLOROTHIAZIDE
     Indication: CONGENITAL NEPHROGENIC DIABETES INSIPIDUS
     Dosage: UNK
     Route: 065

REACTIONS (1)
  - Lichenoid keratosis [Recovered/Resolved]
